FAERS Safety Report 24180726 (Version 1)
Quarter: 2024Q3

REPORT INFORMATION
  Report Type: Spontaneous
  Country: BR (occurrence: BR)
  Receive Date: 20240806
  Receipt Date: 20240806
  Transmission Date: 20241017
  Serious: Yes (Other)
  Sender: AMERICAN REGENT
  Company Number: BR-AMERICAN REGENT INC-2024002992

PATIENT
  Sex: Female
  Weight: 60 kg

DRUGS (5)
  1. VENOFER [Suspect]
     Active Substance: IRON SUCROSE
     Indication: Anaemia
     Dosage: 1 DOSAGE FORM (1 AMPOULE) EVERY 15 DAYS OR ONCE A MONTH
     Dates: start: 2008
  2. VENOFER [Suspect]
     Active Substance: IRON SUCROSE
     Dosage: 100 MILLIGRAM (1 AMPOULE) DILUTED IN 100 ML OF SALINE SOLUTION (100 MG , TWICE A WEEK, EVERY 15 DAYS
     Dates: start: 202307, end: 202311
  3. OSCAL D [CALCIUM CARBONATE;COLECALCIFEROL] [Concomitant]
     Indication: Supplementation therapy
     Dosage: 1 UNIT (1 IN 1 D)
     Route: 048
     Dates: start: 2008
  4. DPREV [Concomitant]
     Indication: Supplementation therapy
     Dosage: 1 UNIT ONCE A WEEK (1 IN 1 WK)
     Route: 048
     Dates: start: 2008
  5. CITONEURIN [CYANOCOBALAMIN;PYRIDOXINE HYDROCHLORIDE;THIAMINE HYDROCHLO [Concomitant]
     Indication: Supplementation therapy
     Dosage: 0.0667 DOSAGE FORMS (1 DOSAGE FORMS,1 IN 15 D)
     Route: 048
     Dates: start: 2008, end: 202401

REACTIONS (14)
  - Umbilical hernia [Not Recovered/Not Resolved]
  - Incisional hernia [Recovered/Resolved]
  - COVID-19 [Recovered/Resolved]
  - Weight decreased [Recovered/Resolved]
  - Hypovitaminosis [Unknown]
  - Iron deficiency [Unknown]
  - Osteoporosis [Not Recovered/Not Resolved]
  - Fear [Unknown]
  - Insomnia [Not Recovered/Not Resolved]
  - Panic reaction [Unknown]
  - Pharyngitis [Recovered/Resolved]
  - Off label use [Unknown]
  - Product use issue [Unknown]
  - Product availability issue [Unknown]

NARRATIVE: CASE EVENT DATE: 20080101
